FAERS Safety Report 9045183 (Version 1)
Quarter: 2013Q1

REPORT INFORMATION
  Report Type: Report from Study
  Country: US (occurrence: US)
  Receive Date: 20130130
  Receipt Date: 20130130
  Transmission Date: 20140127
  Serious: No
  Sender: FDA-Public Use
  Company Number: US-ABBOTT-12P-163-0974732-00

PATIENT
  Age: 80 Year
  Sex: Female

DRUGS (10)
  1. HUMIRA 40 MG/0.8 ML PEN [Suspect]
     Indication: RHEUMATOID ARTHRITIS
     Dates: start: 20120809
  2. ASPIRIN [Concomitant]
     Indication: PRODUCT USED FOR UNKNOWN INDICATION
  3. FOLIC ACID [Concomitant]
     Indication: PRODUCT USED FOR UNKNOWN INDICATION
  4. BONIVA [Concomitant]
     Indication: PRODUCT USED FOR UNKNOWN INDICATION
  5. ARAVA [Concomitant]
     Indication: SWELLING
  6. CALCIUM +D [Concomitant]
     Indication: OSTEOPOROSIS PROPHYLAXIS
     Dosage: 400 MG/200 UNITS
  7. TRIAMTERENE/HCTZ [Concomitant]
     Indication: OEDEMA PERIPHERAL
  8. SULFASALAZINE [Concomitant]
     Indication: ARTHRITIS
     Dosage: 3 TABLETS IN AM, 2 TABLETS IN PM DAILY
  9. PERIVISION [Concomitant]
     Indication: VISUAL IMPAIRMENT
  10. ARANESP [Concomitant]
     Indication: WHITE BLOOD CELL COUNT DECREASED

REACTIONS (1)
  - Headache [Recovered/Resolved]
